FAERS Safety Report 15301696 (Version 2)
Quarter: 2018Q3

REPORT INFORMATION
  Report Type: Spontaneous
  Country: US (occurrence: US)
  Receive Date: 20180821
  Receipt Date: 20180905
  Transmission Date: 20181010
  Serious: Yes (Other)
  Sender: FDA-Public Use
  Company Number: US-AKORN PHARMACEUTICALS-2018AKN01227

PATIENT
  Age: 21 Year
  Sex: Female
  Weight: 79.37 kg

DRUGS (4)
  1. MYORISAN [Suspect]
     Active Substance: ISOTRETINOIN
     Indication: ACNE
     Dosage: UNK
  2. DROSPIRENONE [Concomitant]
     Active Substance: DROSPIRENONE
  3. LEVOTHYROXINE. [Concomitant]
     Active Substance: LEVOTHYROXINE
  4. MYORISAN [Suspect]
     Active Substance: ISOTRETINOIN
     Indication: ACNE
     Dosage: 40 MG, 1X/DAY
     Route: 048
     Dates: start: 20180710, end: 20180715

REACTIONS (5)
  - Adjustment disorder with depressed mood [Recovering/Resolving]
  - Off label use [Recovered/Resolved]
  - Drug ineffective [Not Recovered/Not Resolved]
  - Affect lability [Recovering/Resolving]
  - Scar [Not Recovered/Not Resolved]

NARRATIVE: CASE EVENT DATE: 2018
